FAERS Safety Report 7494786-X (Version None)
Quarter: 2011Q2

REPORT INFORMATION
  Report Type: 
  Country: None (occurrence: None)
  Receive Date: 20110520
  Receipt Date: 20100723
  Transmission Date: 20111010
  Serious: Yes (Hospitalization)
  Sender: FDA-Public Use
  Company Number: A0873881A

PATIENT
  Age: 62 Year
  Sex: Male

DRUGS (3)
  1. VOTRIENT [Suspect]
     Dosage: 400MG TWICE PER DAY
     Route: 048
     Dates: start: 20100616
  2. NORVASC [Concomitant]
  3. UNSPECIFIED MEDICATION [Concomitant]

REACTIONS (6)
  - ADVERSE EVENT [None]
  - FATIGUE [None]
  - TRANSFUSION [None]
  - BLOOD TEST [None]
  - BLOOD CREATININE INCREASED [None]
  - NAUSEA [None]
